FAERS Safety Report 11635752 (Version 6)
Quarter: 2016Q1

REPORT INFORMATION
  Report Type: Spontaneous
  Country: US (occurrence: US)
  Receive Date: 20151016
  Receipt Date: 20160208
  Transmission Date: 20160525
  Serious: Yes (Other)
  Sender: FDA-Public Use
  Company Number: US-PFIZER INC-2015343327

PATIENT
  Age: 78 Year
  Sex: Female
  Weight: 54 kg

DRUGS (4)
  1. PREMARIN [Suspect]
     Active Substance: ESTROGENS, CONJUGATED
     Indication: DYSPAREUNIA
     Dosage: 2 G, 1X/DAY, EVERY NIGHT AT BEDTIME
     Route: 067
     Dates: start: 20151002
  2. PREMARIN [Suspect]
     Active Substance: ESTROGENS, CONJUGATED
     Dosage: 2 G, 1X/DAY (1 APPLICATOR FULL EVERY NIGHT AT BEDTIME)
     Route: 067
     Dates: end: 20151118
  3. PREMARIN [Suspect]
     Active Substance: ESTROGENS, CONJUGATED
     Dosage: 2 G, 1X/DAY (EACH NIGHT)
     Route: 067
     Dates: end: 201512
  4. ASPIRIN. [Concomitant]
     Active Substance: ASPIRIN
     Indication: CEREBROVASCULAR ACCIDENT PROPHYLAXIS
     Dosage: 81 MG, DAILY
     Route: 048

REACTIONS (5)
  - Breast pain [Recovered/Resolved]
  - Dementia [Recovered/Resolved]
  - Speech disorder [Recovered/Resolved]
  - Nipple pain [Recovered/Resolved]
  - Vulvovaginal pruritus [Recovered/Resolved]

NARRATIVE: CASE EVENT DATE: 201511
